FAERS Safety Report 7016978-6 (Version None)
Quarter: 2010Q3

REPORT INFORMATION
  Report Type: 
  Country: None (occurrence: None)
  Receive Date: 20100927
  Receipt Date: 20100915
  Transmission Date: 20110219
  Serious: Yes (Other)
  Sender: FDA-Public Use
  Company Number: FR-PFIZER INC-2010121395

PATIENT
  Age: 70 Year
  Sex: Male

DRUGS (5)
  1. VFEND [Suspect]
  2. CLAFORAN [Suspect]
  3. AMIKIN [Suspect]
     Dosage: 500 MG, UNK
  4. PIPERACILLIN [Suspect]
  5. OFLOCET [Suspect]

REACTIONS (1)
  - CONDITION AGGRAVATED [None]
